FAERS Safety Report 9563328 (Version 1)
Quarter: 2020Q3

REPORT INFORMATION
  Report Type: Report from Study
  Country: EC (occurrence: EC)
  Receive Date: 20130927
  Receipt Date: 20130927
  Transmission Date: 20201105
  Serious: Yes (Hospitalization)
  Sender: FDA-Public Use
  Company Number: EC-ROCHE-1282000

PATIENT
  Age: 71 Year

DRUGS (1)
  1. IBANDRONIC ACID. [Suspect]
     Active Substance: IBANDRONIC ACID
     Indication: OSTEOPOROSIS
     Route: 042
     Dates: start: 20120803

REACTIONS (1)
  - Diabetic complication [Recovered/Resolved]

NARRATIVE: CASE EVENT DATE: 201307
